FAERS Safety Report 22109194 (Version 5)
Quarter: 2023Q4

REPORT INFORMATION
  Report Type: Spontaneous
  Country: US (occurrence: US)
  Receive Date: 20230317
  Receipt Date: 20231211
  Transmission Date: 20240110
  Serious: No
  Sender: FDA-Public Use
  Company Number: US-PFIZER INC-202200377907

PATIENT
  Age: 68 Year
  Sex: Female
  Weight: 65.32 kg

DRUGS (2)
  1. ESTRING [Suspect]
     Active Substance: ESTRADIOL
     Indication: Menopausal symptoms
     Dosage: UNK
     Route: 067
     Dates: start: 2012
  2. ESTRING [Suspect]
     Active Substance: ESTRADIOL
     Indication: Osteoporosis

REACTIONS (1)
  - Device use issue [Unknown]
